FAERS Safety Report 8966162 (Version 2)
Quarter: 2013Q1

REPORT INFORMATION
  Report Type: Spontaneous
  Country: JP (occurrence: JP)
  Receive Date: 20121217
  Receipt Date: 20130124
  Transmission Date: 20140127
  Serious: Yes (Other)
  Sender: FDA-Public Use
  Company Number: JP-009507513-1212JPN004809

PATIENT
  Age: 96 Year
  Sex: Female

DRUGS (1)
  1. GASTER D [Suspect]
     Dosage: 20 MG, QD
     Route: 048

REACTIONS (1)
  - Clostridium difficile colitis [Unknown]
